FAERS Safety Report 21783343 (Version 3)
Quarter: 2023Q1

REPORT INFORMATION
  Report Type: Spontaneous
  Country: US (occurrence: US)
  Receive Date: 20221227
  Receipt Date: 20230310
  Transmission Date: 20230417
  Serious: Yes (Other)
  Sender: FDA-Public Use
  Company Number: US-PFIZER INC-202201389189

PATIENT
  Age: 32 Year
  Sex: Male
  Weight: 117.91 kg

DRUGS (3)
  1. PAXLOVID [Suspect]
     Active Substance: NIRMATRELVIR\RITONAVIR
     Indication: COVID-19 treatment
     Dosage: [PF-07321332 300 MG]/[RITONAVIR 100 MG]; 2X/DAY
     Route: 048
     Dates: start: 20221211, end: 20221216
  2. LOSARTAN [Concomitant]
     Active Substance: LOSARTAN
     Indication: Hypertension
     Dosage: 50 MG, DAILY
     Dates: start: 20221010
  3. CETIRIZINE HYDROCHLORIDE [Concomitant]
     Active Substance: CETIRIZINE HYDROCHLORIDE
     Indication: Hypersensitivity
     Dosage: 10 MG, DAILY
     Dates: start: 202110

REACTIONS (3)
  - Post-acute COVID-19 syndrome [Recovered/Resolved]
  - COVID-19 [Recovered/Resolved with Sequelae]
  - Disease recurrence [Recovered/Resolved with Sequelae]

NARRATIVE: CASE EVENT DATE: 20221218
